FAERS Safety Report 21736357 (Version 2)
Quarter: 2022Q4

REPORT INFORMATION
  Report Type: Report from Study
  Country: US (occurrence: US)
  Receive Date: 20221215
  Receipt Date: 20221222
  Transmission Date: 20230112
  Serious: Yes (Other)
  Sender: FDA-Public Use
  Company Number: US-ABBVIE-4235893

PATIENT
  Sex: Female
  Weight: 78 kg

DRUGS (48)
  1. VENCLEXTA [Suspect]
     Active Substance: VENETOCLAX
     Indication: Plasma cell myeloma
     Route: 048
     Dates: start: 20210122
  2. VENCLEXTA [Suspect]
     Active Substance: VENETOCLAX
     Indication: Plasma cell myeloma
     Dosage: 100MG TABLET
     Route: 048
     Dates: start: 20210122
  3. VENCLEXTA [Suspect]
     Active Substance: VENETOCLAX
     Indication: Plasma cell myeloma
     Dosage: TIME INTERVAL: 0.125 DAYS
     Route: 048
     Dates: start: 202005
  4. ROPINIROLE [Concomitant]
     Active Substance: ROPINIROLE
     Indication: Restless legs syndrome
     Dosage: 4 MG ONE TIME BEFORE BED, 2 MG AS NEED ^IF I HAVE IT COME ON LATER
     Route: 048
     Dates: start: 2022
  5. ROPINIROLE [Concomitant]
     Active Substance: ROPINIROLE
     Indication: Restless legs syndrome
     Dosage: 4 MG ONE TIME BEFORE BED, 2 MG AS NEED ^IF I HAVE IT COME ON LATER
     Route: 048
     Dates: start: 2022
  6. TYLENOL [Concomitant]
     Active Substance: ACETAMINOPHEN
     Indication: Chemotherapy
     Dosage: 650 MG, ONE TABLET IN THE SAME TIMEFRAME, 1 HOUR BEFORE THE INFUSION ;
     Route: 048
     Dates: start: 2019
  7. TYLENOL [Concomitant]
     Active Substance: ACETAMINOPHEN
     Indication: Chemotherapy
     Dosage: 650 MG, ONE TABLET IN THE SAME TIMEFRAME, 1 HOUR BEFORE THE INFUSION ;1 HOUR PRIOR TO RECEIVING
     Route: 048
     Dates: start: 2019
  8. KYPROLIS [Concomitant]
     Active Substance: CARFILZOMIB
     Indication: Plasma cell myeloma
     Route: 042
  9. KYPROLIS [Concomitant]
     Active Substance: CARFILZOMIB
     Indication: Plasma cell myeloma
     Dosage: FREQUENCY TEXT: 1 TIME EACH WEEK ON MONDAY^S, LAST DOSE WAS 05-DEC-2022
     Route: 042
  10. BENADRYL [Concomitant]
     Active Substance: DIPHENHYDRAMINE HYDROCHLORIDE
     Indication: Chemotherapy
     Dosage: FREQUENCY TEXT: 1 TABLET 1 HOUR PRIOR TO THE IV INFUSION
     Route: 048
  11. ROSUVASTATIN [Concomitant]
     Active Substance: ROSUVASTATIN
     Indication: Product used for unknown indication
  12. AZITHROMYCIN [Suspect]
     Active Substance: AZITHROMYCIN
     Indication: Product used for unknown indication
     Route: 065
  13. DULOXETINE [Concomitant]
     Active Substance: DULOXETINE
     Indication: Spinal pain
     Dosage: FREQUENCY TEXT: DAILY, NIGHT TIME BEFORE BED
     Route: 048
     Dates: start: 2012
  14. HYDROMET [Suspect]
     Active Substance: HOMATROPINE METHYLBROMIDE\HYDROCODONE BITARTRATE
     Indication: Product used for unknown indication
     Dosage: COUGH SYRUP
     Route: 065
  15. LEVOTHYROXINE SODIUM [Concomitant]
     Active Substance: LEVOTHYROXINE SODIUM
     Indication: Hypothyroidism
     Route: 048
     Dates: start: 1962
  16. TIZANIDINE [Concomitant]
     Active Substance: TIZANIDINE
     Indication: Muscle relaxant therapy
     Dosage: FREQUENCY TEXT: 1 TIME AT NIGHT TIME
     Route: 048
  17. ASPIRIN [Concomitant]
     Active Substance: ASPIRIN
     Indication: Headache
  18. DEXAMETHASONE [Concomitant]
     Active Substance: DEXAMETHASONE
     Indication: Product used for unknown indication
     Dosage: 20 MG IN TOTAL, TAKES 5, 4MG TABLETS 1 HOUR BEFORE CHEMOTHERAPY
     Route: 048
     Dates: start: 2019
  19. DEXAMETHASONE [Concomitant]
     Active Substance: DEXAMETHASONE
     Indication: Product used for unknown indication
     Dosage: 20 MG IN TOTAL, TAKES 5, 4MG TABLETS 1 HOUR BEFORE CHEMOTHERAPY
     Route: 048
     Dates: start: 2019
  20. DEXAMETHASONE [Concomitant]
     Active Substance: DEXAMETHASONE
     Indication: Product used for unknown indication
     Dosage: 20 MG IN TOTAL, TAKES 5, 4MG TABLETS 1 HOUR BEFORE CHEMOTHERAPY
     Route: 048
     Dates: start: 2019
  21. GABAPENTIN [Concomitant]
     Active Substance: GABAPENTIN
     Indication: Nervous system disorder
     Route: 048
     Dates: start: 2012
  22. VALACYCLOVIR HYDROCHLORIDE [Concomitant]
     Active Substance: VALACYCLOVIR HYDROCHLORIDE
     Indication: Stem cell transplant
     Dosage: 1 GRAM, 2 TIMES A DAY ;ONGOING: YES ANTI-VIRAL MEDICATION,
     Dates: start: 2012
  23. LISINOPRIL [Concomitant]
     Active Substance: LISINOPRIL
     Indication: Blood pressure measurement
     Route: 048
  24. CIPRO [Concomitant]
     Active Substance: CIPROFLOXACIN HYDROCHLORIDE
     Indication: Urinary tract infection
  25. ONDANSETRON [Concomitant]
     Active Substance: ONDANSETRON
     Indication: Nausea
     Dosage: 4 MG, MAYBE EVERY 8 HOURS OR SO, NOT A REGULAR IT WHEN THE NAUSEA COMES ON TAKE  THAT AND REST
     Route: 048
     Dates: start: 2012
  26. FENOFIBRATE [Concomitant]
     Active Substance: FENOFIBRATE
     Indication: Product used for unknown indication
  27. ACETAMINOPHEN\HYDROCODONE [Concomitant]
     Active Substance: ACETAMINOPHEN\HYDROCODONE
     Indication: Spinal pain
     Dosage: 10 OVER 325, EVERY 4 HOURS, ^I HAVE TO, ITS JUST SO PAINFUL^
     Route: 048
     Dates: start: 2012
  28. XANAX [Concomitant]
     Active Substance: ALPRAZOLAM
     Indication: Product used for unknown indication
     Dosage: 0.25MG
     Dates: start: 20150223
  29. CRESTOR [Concomitant]
     Active Substance: ROSUVASTATIN CALCIUM
     Indication: Product used for unknown indication
     Dosage: 10MG TABLET
  30. ANTIVERT [Concomitant]
     Active Substance: MECLIZINE HYDROCHLORIDE
     Indication: Dizziness
     Dosage: 25MG TABLET
  31. ANTIVERT [Concomitant]
     Active Substance: MECLIZINE HYDROCHLORIDE
     Indication: Dizziness
     Dosage: 25MG
  32. ACIPHEX [Concomitant]
     Active Substance: RABEPRAZOLE SODIUM
     Indication: Product used for unknown indication
     Dosage: 20MG EC TABLET
  33. NORCO [Concomitant]
     Active Substance: ACETAMINOPHEN\HYDROCODONE BITARTRATE
     Indication: Product used for unknown indication
     Dosage: 1 TAB BY MOUTH 4 TIMES A DAY
     Dates: start: 20180419
  34. ZINC GLUCONATE [Concomitant]
     Active Substance: ZINC GLUCONATE
     Indication: Product used for unknown indication
     Dosage: 50MG
  35. GLUCOPHAGE [Concomitant]
     Active Substance: METFORMIN HYDROCHLORIDE
     Indication: Product used for unknown indication
     Dosage: 500MG
     Dates: start: 20180419
  36. CYMBALTA [Concomitant]
     Active Substance: DULOXETINE HYDROCHLORIDE
     Indication: Product used for unknown indication
     Dosage: 60MG DR CAPSULE
     Dates: start: 20150223
  37. NEURONTIN [Concomitant]
     Active Substance: GABAPENTIN
     Indication: Product used for unknown indication
     Dosage: 800MG
     Dates: start: 20150223
  38. VITAMIN D3 [Concomitant]
     Active Substance: CHOLECALCIFEROL
     Indication: Product used for unknown indication
     Dosage: 100MCG
     Dates: start: 20150223
  39. COLAZAL [Concomitant]
     Active Substance: BALSALAZIDE DISODIUM
     Indication: Product used for unknown indication
     Dosage: 2250 MG
  40. VITAMIN B12 [Concomitant]
     Active Substance: CYANOCOBALAMIN
     Indication: Product used for unknown indication
     Dosage: 1000  G
     Dates: start: 20180419
  41. ZANAFLEX [Concomitant]
     Active Substance: TIZANIDINE HYDROCHLORIDE
     Indication: Product used for unknown indication
     Dosage: 4MG CAPSULE
     Dates: start: 20180419
  42. SYNTHROID [Concomitant]
     Active Substance: LEVOTHYROXINE SODIUM
     Indication: Product used for unknown indication
     Dosage: 100MCG
  43. VALTREX [Concomitant]
     Active Substance: VALACYCLOVIR HYDROCHLORIDE
     Indication: Product used for unknown indication
     Dosage: 2 TABS BY MOUTH DAILY
     Dates: start: 20180419
  44. VALTREX [Concomitant]
     Active Substance: VALACYCLOVIR HYDROCHLORIDE
     Indication: Product used for unknown indication
     Dosage: 2 TABS BY MOUTH DAILY
     Dates: start: 20180419
  45. ZOFRAN [Concomitant]
     Active Substance: ONDANSETRON HYDROCHLORIDE
     Indication: Vomiting
     Dosage: 8MG TABLET
  46. ZOFRAN [Concomitant]
     Active Substance: ONDANSETRON HYDROCHLORIDE
     Indication: Vomiting
     Dosage: 8MG
  47. LOFIBRA [Concomitant]
     Active Substance: FENOFIBRATE
     Indication: Product used for unknown indication
     Dosage: 160MG
  48. IMODIUM [Concomitant]
     Active Substance: LOPERAMIDE HYDROCHLORIDE
     Indication: Product used for unknown indication

REACTIONS (20)
  - Deafness [Recovering/Resolving]
  - Escherichia infection [Not Recovered/Not Resolved]
  - Hypertension [Not Recovered/Not Resolved]
  - Restless legs syndrome [Not Recovered/Not Resolved]
  - Urinary tract infection [Recovered/Resolved]
  - White blood cell count decreased [Unknown]
  - Hypotension [Not Recovered/Not Resolved]
  - Dizziness [Unknown]
  - Fall [Recovered/Resolved]
  - Vomiting [Unknown]
  - Balance disorder [Not Recovered/Not Resolved]
  - Headache [Not Recovered/Not Resolved]
  - Hypersensitivity [Unknown]
  - Feeling abnormal [Not Recovered/Not Resolved]
  - Red blood cell count decreased [Unknown]
  - Feeling abnormal [Not Recovered/Not Resolved]
  - Product use in unapproved indication [Unknown]
  - Amnesia [Not Recovered/Not Resolved]
  - Abdominal pain upper [Unknown]
  - Feeling abnormal [Recovered/Resolved]

NARRATIVE: CASE EVENT DATE: 20200101
